FAERS Safety Report 5074726-3 (Version None)
Quarter: 2006Q3

REPORT INFORMATION
  Report Type: 
  Country: None (occurrence: None)
  Receive Date: 20060803
  Receipt Date: 20060725
  Transmission Date: 20061208
  Serious: Yes (Other)
  Sender: FDA-Public Use
  Company Number: B0432793A

PATIENT
  Sex: Male

DRUGS (5)
  1. LITHIUM CARBONATE [Suspect]
  2. PAXIL [Suspect]
     Indication: SUICIDAL IDEATION
  3. VALPROIC ACID [Concomitant]
  4. CHLORPROMAZINE HCL [Concomitant]
  5. OLANZAPINE [Concomitant]

REACTIONS (16)
  - ABNORMAL BEHAVIOUR [None]
  - AFFECTIVE DISORDER [None]
  - BIPOLAR I DISORDER [None]
  - CONDUCT DISORDER [None]
  - DEPRESSION [None]
  - HOSTILITY [None]
  - INTENTIONAL OVERDOSE [None]
  - IRRITABILITY [None]
  - MANIA [None]
  - MOOD SWINGS [None]
  - NEPHROPATHY TOXIC [None]
  - POOR PERSONAL HYGIENE [None]
  - PSYCHOTIC DISORDER [None]
  - SOCIAL AVOIDANT BEHAVIOUR [None]
  - SPEECH DISORDER [None]
  - SUICIDE ATTEMPT [None]
